FAERS Safety Report 4439355-0 (Version None)
Quarter: 2004Q3

REPORT INFORMATION
  Report Type: 
  Country: None (occurrence: None)
  Receive Date: 20040831
  Receipt Date: 20040819
  Transmission Date: 20050211
  Serious: Yes (Hospitalization)
  Sender: FDA-Public Use
  Company Number: 2004227998US

PATIENT
  Age: 67 Year
  Sex: Female
  Weight: 61.7 kg

DRUGS (3)
  1. CAMPTOSAR [Suspect]
     Indication: SMALL CELL LUNG CANCER LIMITED STAGE
     Dosage: 103 MC, CYCLE 1, IV
     Route: 042
     Dates: start: 20040804
  2. CISPLATIN [Suspect]
     Indication: SMALL CELL LUNG CANCER LIMITED STAGE
     Dosage: 86 MG, CYCLE 1, IV
     Route: 042
     Dates: start: 20040804
  3. RADIATION THERAPY [Suspect]
     Dosage: BID
     Dates: start: 20040804

REACTIONS (6)
  - ABDOMINAL PAIN [None]
  - COMPUTERISED TOMOGRAM ABNORMAL [None]
  - CONSTIPATION [None]
  - INFLAMMATION [None]
  - NAUSEA [None]
  - VOMITING [None]
